FAERS Safety Report 10108270 (Version 2)
Quarter: 2014Q2

REPORT INFORMATION
  Report Type: Spontaneous
  Country: CH (occurrence: CH)
  Receive Date: 20140425
  Receipt Date: 20140425
  Transmission Date: 20141212
  Serious: Yes (Hospitalization, Other)
  Sender: FDA-Public Use
  Company Number: CH-PFIZER INC-2014036352

PATIENT
  Age: 69 Year
  Sex: Male

DRUGS (1)
  1. CRIZOTINIB [Suspect]
     Indication: LUNG ADENOCARCINOMA METASTATIC
     Dosage: 250 MG, 2X/DAY
     Dates: start: 201310

REACTIONS (2)
  - General physical health deterioration [Recovered/Resolved]
  - Pneumonitis [Recovered/Resolved]
